FAERS Safety Report 5262615-0 (Version None)
Quarter: 2007Q1

REPORT INFORMATION
  Report Type: 
  Country: None (occurrence: None)
  Receive Date: 20070309
  Receipt Date: 20070309
  Transmission Date: 20070707
  Serious: Yes (Other)
  Sender: FDA-Public Use
  Company Number: None

PATIENT
  Age: 63 Year
  Sex: Female

DRUGS (5)
  1. EVISTA [Suspect]
     Indication: OSTEOPENIA
     Dosage: 60 MG/D  PO
     Route: 048
     Dates: start: 20060630, end: 20061117
  2. ZETIA [Concomitant]
  3. LOVASTATIN [Concomitant]
  4. IBP [Concomitant]
  5. TYLENOL [Concomitant]

REACTIONS (1)
  - ENDOMETRIAL CANCER [None]
